FAERS Safety Report 8667307 (Version 4)
Quarter: 2012Q4

REPORT INFORMATION
  Report Type: 
  Country: US (occurrence: US)
  Receive Date: 20120717
  Receipt Date: 20121029
  Transmission Date: 20130627
  Serious: Yes (Hospitalization, Other)
  Sender: FDA-Public Use
  Company Number: US-CELGENEUS-163-21880-12040882

PATIENT
  Age: 73 None
  Sex: Male

DRUGS (4)
  1. REVLIMID [Suspect]
     Indication: MULTIPLE MYELOMA
     Dosage: 15 Milligram
     Route: 048
     Dates: start: 20120220, end: 20120501
  2. REVLIMID [Suspect]
     Dosage: 25 Milligram
     Route: 048
     Dates: start: 20120618
  3. COUMADIN [Concomitant]
     Indication: CLOT BLOOD
     Route: 065
  4. BYSTOLIC [Concomitant]
     Indication: BLOOD PRESSURE HIGH
     Route: 065

REACTIONS (10)
  - Gastrointestinal disorder [Recovered/Resolved]
  - Abdominal infection [Unknown]
  - International normalised ratio increased [Unknown]
  - Dyspnoea [Unknown]
  - Contusion [Unknown]
  - Fatigue [Unknown]
  - Diarrhoea [Unknown]
  - Asthenia [Unknown]
  - Hypotension [Unknown]
  - Blood immunoglobulin M increased [Unknown]
